FAERS Safety Report 14772496 (Version 1)
Quarter: 2018Q2

REPORT INFORMATION
  Report Type: Report from Study
  Country: None (occurrence: CA)
  Receive Date: 20180418
  Receipt Date: 20180418
  Transmission Date: 20180711
  Serious: Yes (Other)
  Sender: FDA-Public Use
  Company Number: CA-ABBVIE-18K-028-2324544-00

PATIENT
  Sex: Female

DRUGS (1)
  1. HUMIRA [Suspect]
     Active Substance: ADALIMUMAB
     Indication: CROHN^S DISEASE
     Route: 058
     Dates: start: 20090506

REACTIONS (5)
  - Brain neoplasm [Not Recovered/Not Resolved]
  - Intestinal obstruction [Recovered/Resolved]
  - Arthralgia [Not Recovered/Not Resolved]
  - Intestinal obstruction [Recovering/Resolving]
  - Optic nerve compression [Not Recovered/Not Resolved]

NARRATIVE: CASE EVENT DATE: 2014
